FAERS Safety Report 21922606 (Version 1)
Quarter: 2023Q1

REPORT INFORMATION
  Report Type: Spontaneous
  Country: US (occurrence: US)
  Receive Date: 20230128
  Receipt Date: 20230128
  Transmission Date: 20230418
  Serious: No
  Sender: FDA-Public Use
  Company Number: US-BIOGEN-2022BI01151093

PATIENT
  Age: 62 Year
  Sex: Female

DRUGS (6)
  1. AVONEX PEN [Suspect]
     Active Substance: INTERFERON BETA-1A
     Indication: Multiple sclerosis
     Dosage: INJECT 1 PREFILLED PEN INTRAMUSCULARLY ONCE WEEKLY
     Route: 050
     Dates: start: 202209
  2. AVONEX PEN [Suspect]
     Active Substance: INTERFERON BETA-1A
  3. AVONEX PEN [Suspect]
     Active Substance: INTERFERON BETA-1A
  4. AVONEX PEN [Suspect]
     Active Substance: INTERFERON BETA-1A
  5. ALENDRONATE SODIUM [Concomitant]
     Active Substance: ALENDRONATE SODIUM
     Route: 050
  6. MELOXICAM [Concomitant]
     Active Substance: MELOXICAM
     Route: 050

REACTIONS (4)
  - Viral infection [Unknown]
  - Hypoaesthesia [Unknown]
  - Chills [Recovered/Resolved with Sequelae]
  - Fatigue [Recovered/Resolved with Sequelae]

NARRATIVE: CASE EVENT DATE: 20230124
